FAERS Safety Report 25650353 (Version 3)
Quarter: 2025Q4

REPORT INFORMATION
  Report Type: Spontaneous
  Country: US (occurrence: US)
  Receive Date: 20250806
  Receipt Date: 20251229
  Transmission Date: 20260119
  Serious: Yes (Life-Threatening, Hospitalization)
  Sender: ELI LILLY AND COMPANY
  Company Number: US-ELI_LILLY_AND_COMPANY-US202508001620

PATIENT
  Age: 43 Year
  Sex: Female
  Weight: 96 kg

DRUGS (13)
  1. MOUNJARO [Suspect]
     Active Substance: TIRZEPATIDE
     Indication: Type 2 diabetes mellitus
     Dosage: 2.5 MG, WEEKLY (1/W)
     Route: 065
     Dates: start: 20240124, end: 20240213
  2. MOUNJARO [Suspect]
     Active Substance: TIRZEPATIDE
     Indication: Type 2 diabetes mellitus
     Dosage: 2.5 MG, WEEKLY (1/W)
     Route: 065
     Dates: start: 20240124, end: 20240213
  3. TRULICITY [Suspect]
     Active Substance: DULAGLUTIDE
     Indication: Type 2 diabetes mellitus
     Dosage: 0.75 MG, WEEKLY (1/W)
     Route: 065
     Dates: start: 20240213, end: 20240315
  4. OZEMPIC [Suspect]
     Active Substance: SEMAGLUTIDE
     Indication: Type 2 diabetes mellitus
     Dosage: 0.25 MG, WEEKLY (1/W)
     Route: 065
     Dates: start: 20230717, end: 20230817
  5. OZEMPIC [Suspect]
     Active Substance: SEMAGLUTIDE
     Dosage: 0.5 MG, WEEKLY (1/W)
     Route: 065
     Dates: start: 20230817, end: 20230824
  6. METFORMIN [Concomitant]
     Active Substance: METFORMIN HYDROCHLORIDE
     Indication: Type 2 diabetes mellitus
     Dosage: UNK
     Dates: start: 20240315
  7. INSULIN NOS [Concomitant]
     Active Substance: INSULIN NOS
     Indication: Type 2 diabetes mellitus
     Dosage: UNK
     Dates: start: 20210101
  8. OFLOXACIN [Concomitant]
     Active Substance: OFLOXACIN
     Indication: Eye disorder
     Dosage: UNK
     Dates: start: 20230101
  9. DICYCLOMINE [Concomitant]
     Active Substance: DICYCLOMINE HYDROCHLORIDE
     Indication: Irritable bowel syndrome
     Dosage: UNK
     Dates: start: 20230601, end: 20230806
  10. ROSUVASTATIN [Concomitant]
     Active Substance: ROSUVASTATIN
     Indication: Blood cholesterol increased
     Dosage: UNK
     Dates: start: 20230601
  11. GLUCAGON [Concomitant]
     Active Substance: GLUCAGON
     Indication: Hypoglycaemia
     Dosage: UNK
     Dates: start: 20230601
  12. LOSARTAN [Concomitant]
     Active Substance: LOSARTAN
     Indication: Hypertension
     Dosage: UNK
     Dates: start: 20230817
  13. METHIMAZOLE [Concomitant]
     Active Substance: METHIMAZOLE
     Indication: Hyperthyroidism
     Dosage: UNK
     Dates: start: 20230817

REACTIONS (9)
  - Dehydration [Unknown]
  - Impaired gastric emptying [Recovered/Resolved]
  - Nausea [Recovered/Resolved]
  - Vomiting [Unknown]
  - Gastrointestinal pain [Unknown]
  - Constipation [Recovered/Resolved]
  - Abdominal pain [Unknown]
  - Gastric hypomotility [Unknown]
  - Diarrhoea [Unknown]

NARRATIVE: CASE EVENT DATE: 20230801
